FAERS Safety Report 16088719 (Version 1)
Quarter: 2019Q1

REPORT INFORMATION
  Report Type: Spontaneous
  Country: IT (occurrence: IT)
  Receive Date: 20190319
  Receipt Date: 20190319
  Transmission Date: 20190418
  Serious: Yes (Hospitalization)
  Sender: FDA-Public Use
  Company Number: IT-STRIDES ARCOLAB LIMITED-2019SP002385

PATIENT
  Age: 18 Year
  Sex: Male

DRUGS (1)
  1. TACROLIMUS. [Suspect]
     Active Substance: TACROLIMUS
     Indication: RENAL TRANSPLANT
     Dosage: UNK
     Route: 065

REACTIONS (9)
  - Purtscher retinopathy [Unknown]
  - Retinal ischaemia [Unknown]
  - Venous occlusion [Unknown]
  - Retinal haemorrhage [Unknown]
  - Maculopathy [Unknown]
  - Drug level increased [Unknown]
  - Asthenia [Unknown]
  - Arterial occlusive disease [Unknown]
  - Blindness [Unknown]
